FAERS Safety Report 10901571 (Version 2)
Quarter: 2015Q2

REPORT INFORMATION
  Report Type: Spontaneous
  Country: US (occurrence: US)
  Receive Date: 20150310
  Receipt Date: 20150514
  Transmission Date: 20150821
  Serious: Yes (Death, Hospitalization, Other)
  Sender: FDA-Public Use
  Company Number: US-009507513-1503USA003639

PATIENT
  Sex: Male
  Weight: 99.77 kg

DRUGS (1)
  1. JANUVIA [Suspect]
     Active Substance: SITAGLIPTIN PHOSPHATE
     Indication: TYPE 2 DIABETES MELLITUS
     Dosage: 100 MG, QD
     Route: 048
     Dates: start: 20080219, end: 20120308

REACTIONS (4)
  - Pancreatic carcinoma [Unknown]
  - Gallbladder operation [Unknown]
  - Cardiac pacemaker insertion [Unknown]
  - Death [Fatal]

NARRATIVE: CASE EVENT DATE: 200909
